FAERS Safety Report 14477019 (Version 1)
Quarter: 2018Q1

REPORT INFORMATION
  Report Type: Report from Study
  Country: US (occurrence: US)
  Receive Date: 20180201
  Receipt Date: 20180201
  Transmission Date: 20180509
  Serious: No
  Sender: FDA-Public Use
  Company Number: US-EXELIXIS-CABO-17009824

PATIENT
  Sex: Male

DRUGS (9)
  1. ASPIRIN EC [Concomitant]
     Active Substance: ASPIRIN
  2. KEPPRA [Concomitant]
     Active Substance: LEVETIRACETAM
  3. COMPAZINE [Concomitant]
     Active Substance: PROCHLORPERAZINE MALEATE
  4. GARLIC. [Concomitant]
     Active Substance: GARLIC
  5. CABOMETYX [Suspect]
     Active Substance: CABOZANTINIB S-MALATE
     Indication: RENAL CANCER
     Dosage: 60 MG, QD
     Route: 048
     Dates: start: 20170426
  6. AVASTIN [Concomitant]
     Active Substance: BEVACIZUMAB
  7. CABOMETYX [Suspect]
     Active Substance: CABOZANTINIB S-MALATE
     Dosage: 40 MG, QD
     Route: 048
  8. COQ10 [Concomitant]
     Active Substance: UBIDECARENONE
  9. FISH OIL [Concomitant]
     Active Substance: FISH OIL

REACTIONS (2)
  - Blister [Unknown]
  - Pain in extremity [Unknown]
